FAERS Safety Report 5619449-4 (Version None)
Quarter: 2008Q1

REPORT INFORMATION
  Report Type: 
  Country: None (occurrence: None)
  Receive Date: 20080109
  Receipt Date: 20070821
  Transmission Date: 20080703
  Serious: Yes (Disabling)
  Sender: FDA-Public Use
  Company Number: WAES 0708USA04067

PATIENT
  Age: 58 Year
  Sex: Female

DRUGS (7)
  1. ZETIA [Suspect]
     Indication: HYPERCHOLESTEROLAEMIA
     Dosage: PO
     Route: 048
     Dates: start: 20070811
  2. NORVASC [Concomitant]
  3. PREVACID [Concomitant]
  4. SINGULAIR [Concomitant]
  5. BUPROPION HYDROCHLORIDE [Concomitant]
  6. CLONAZEPAM [Concomitant]
  7. TRIAMTERENE [Concomitant]

REACTIONS (1)
  - MYALGIA [None]
